FAERS Safety Report 5208930-8 (Version None)
Quarter: 2007Q1

REPORT INFORMATION
  Report Type: 
  Country: None (occurrence: None)
  Receive Date: 20070111
  Receipt Date: 20070111
  Transmission Date: 20070707
  Serious: Yes (Other)
  Sender: FDA-Public Use
  Company Number: None

PATIENT
  Age: 62 Year
  Sex: Male
  Weight: 79.2 kg

DRUGS (1)
  1. PACLITAXEL [Suspect]
     Indication: LUNG NEOPLASM MALIGNANT
     Dosage: 350MG, 350MG X1, INTRAVEN
     Route: 042
     Dates: start: 20061117, end: 20061117

REACTIONS (3)
  - CYANOSIS [None]
  - DYSPNOEA [None]
  - HYPOTENSION [None]
